FAERS Safety Report 19736193 (Version 2)
Quarter: 2021Q3

REPORT INFORMATION
  Report Type: Spontaneous
  Country: US (occurrence: US)
  Receive Date: 20210824
  Receipt Date: 20210920
  Transmission Date: 20211014
  Serious: Yes (Other)
  Sender: FDA-Public Use
  Company Number: US-DRREDDYS-SPO/USA/21/0139120

PATIENT
  Age: 26 Year
  Sex: Female

DRUGS (2)
  1. ZENATANE [Suspect]
     Active Substance: ISOTRETINOIN
     Indication: PRODUCT USED FOR UNKNOWN INDICATION
     Dosage: RMA ISSUE DATE:26?FEBRUARY?2021 6:12:32 PM, 12?APRIL?2021 1:43:20 PM, 12?MAY?2021 11:41:11 AM
  2. ZENATANE [Suspect]
     Active Substance: ISOTRETINOIN
     Dosage: RMA ISSUE DATE: 10?JUNE?2021 3:51:20 PM
     Dates: start: 20210126, end: 20210724

REACTIONS (3)
  - Abortion induced [Unknown]
  - COVID-19 [Recovered/Resolved]
  - Exposure during pregnancy [Unknown]

NARRATIVE: CASE EVENT DATE: 20210803
